FAERS Safety Report 9766521 (Version 1)
Quarter: 2013Q4

REPORT INFORMATION
  Report Type: Spontaneous
  Country: US (occurrence: US)
  Receive Date: 20131217
  Receipt Date: 20131217
  Transmission Date: 20140711
  Serious: No
  Sender: FDA-Public Use
  Company Number: US-GLAXOSMITHKLINE-A1028911A

PATIENT
  Age: 76 Year
  Sex: Female

DRUGS (10)
  1. VOTRIENT [Suspect]
     Indication: RENAL CELL CARCINOMA
     Dosage: 2TAB PER DAY
     Route: 048
     Dates: start: 201208
  2. ARIMIDEX [Concomitant]
  3. ASPIRIN [Concomitant]
  4. TYLENOL [Concomitant]
  5. LOVASTATIN [Concomitant]
  6. OMEPRAZOL [Concomitant]
  7. SOTALOL [Concomitant]
  8. SPIRONOLACTONE [Concomitant]
  9. WARFARIN [Concomitant]
  10. NITROFURANTOIN [Concomitant]

REACTIONS (3)
  - Diarrhoea [Recovered/Resolved]
  - Abdominal pain upper [Unknown]
  - Eating disorder [Unknown]
